FAERS Safety Report 13747095 (Version 8)
Quarter: 2020Q3

REPORT INFORMATION
  Report Type: Report from Study
  Country: PL (occurrence: PL)
  Receive Date: 20170712
  Receipt Date: 20181210
  Transmission Date: 20201104
  Serious: Yes (Death, Hospitalization, Other)
  Sender: FDA-Public Use
  Company Number: PL-ASTRAZENECA-2017SE27111

PATIENT
  Age: 24160 Day
  Sex: Female

DRUGS (11)
  1. METOCLOPRAMIDE HYDROCHLORIDE. [Concomitant]
     Active Substance: METOCLOPRAMIDE HYDROCHLORIDE
     Indication: NAUSEA
     Route: 048
     Dates: start: 20170201
  2. AMLOPIN [AMLODIPINE BESILATE] [Concomitant]
     Active Substance: AMLODIPINE BESYLATE
     Indication: HYPERTENSION
     Route: 048
     Dates: start: 1987
  3. ENCORTON [Concomitant]
     Active Substance: PREDNISONE
     Indication: NAUSEA
     Route: 048
     Dates: start: 20170301, end: 20170316
  4. CONTROLOC [Concomitant]
     Active Substance: PANTOPRAZOLE SODIUM
     Indication: NAUSEA
     Route: 048
     Dates: start: 20170301, end: 20170321
  5. LERIVON [Concomitant]
     Active Substance: MIANSERIN HYDROCHLORIDE
     Indication: NAUSEA
     Route: 048
     Dates: start: 20170301, end: 20170317
  6. ATENOLOL. [Concomitant]
     Active Substance: ATENOLOL
     Indication: HYPERTENSION
     Route: 048
     Dates: start: 1987
  7. MEDI4736 [Suspect]
     Active Substance: DURVALUMAB
     Indication: SQUAMOUS CELL CARCINOMA OF HEAD AND NECK
     Route: 042
     Dates: start: 20170220, end: 20170220
  8. MATRIFEN [Concomitant]
     Active Substance: FENTANYL
     Indication: CANCER PAIN
     Route: 062
     Dates: start: 20161215
  9. TREMELIMUMAB. [Suspect]
     Active Substance: TREMELIMUMAB
     Indication: SQUAMOUS CELL CARCINOMA OF HEAD AND NECK
     Route: 042
     Dates: start: 20170220, end: 20170220
  10. METAFEN [Concomitant]
     Indication: CANCER PAIN
     Route: 048
     Dates: start: 20161215
  11. ENCORTON [Concomitant]
     Active Substance: PREDNISONE
     Indication: NAUSEA
     Route: 048
     Dates: start: 20170319, end: 20170321

REACTIONS (3)
  - Fungal infection [Not Recovered/Not Resolved]
  - Laryngeal oedema [Fatal]
  - Tongue oedema [Not Recovered/Not Resolved]

NARRATIVE: CASE EVENT DATE: 20170225
